FAERS Safety Report 20818074 (Version 2)
Quarter: 2022Q2

REPORT INFORMATION
  Report Type: Spontaneous
  Country: DE (occurrence: DE)
  Receive Date: 20220512
  Receipt Date: 20220526
  Transmission Date: 20220721
  Serious: Yes (Other)
  Sender: FDA-Public Use
  Company Number: DE-TEVA-2022-DE-2034964

PATIENT
  Age: 81 Year
  Sex: Male

DRUGS (4)
  1. FLUOROURACIL [Suspect]
     Active Substance: FLUOROURACIL
     Indication: Pancreatic neuroendocrine tumour metastatic
     Dosage: DAYS 1-5 EVERY DAY OF A 43-DAY CYCLE
     Route: 065
     Dates: start: 201409, end: 201704
  2. FLUOROURACIL [Suspect]
     Active Substance: FLUOROURACIL
     Dosage: DAY 1 OF 22-DAY CYCLE
     Route: 065
     Dates: start: 201704
  3. STREPTOZOCIN [Suspect]
     Active Substance: STREPTOZOCIN
     Indication: Pancreatic neuroendocrine tumour metastatic
     Dosage: DAYS 1-5 EVERY DAY OF A 43-DAY CYCLE
     Route: 065
     Dates: start: 201409, end: 201704
  4. STREPTOZOCIN [Suspect]
     Active Substance: STREPTOZOCIN
     Dosage: DAY 1 OF 22-DAY CYCLE
     Route: 065
     Dates: start: 201704

REACTIONS (1)
  - Chronic kidney disease [Not Recovered/Not Resolved]

NARRATIVE: CASE EVENT DATE: 20180601
